FAERS Safety Report 4408359-6 (Version None)
Quarter: 2004Q3

REPORT INFORMATION
  Report Type: 
  Country: None (occurrence: None)
  Receive Date: 20040722
  Receipt Date: 20040712
  Transmission Date: 20050211
  Serious: Yes (Other)
  Sender: FDA-Public Use
  Company Number: 2004046801

PATIENT
  Sex: Male

DRUGS (5)
  1. ZOLOFT [Suspect]
     Indication: OBSESSIVE-COMPULSIVE DISORDER
     Dosage: (50 MG, D)
  2. AMISULPRIDE [Concomitant]
  3. BROMAZEPAM [Concomitant]
  4. ALIMEMAZINE TARTRATE [Concomitant]
  5. ZOPICLONE [Concomitant]

REACTIONS (2)
  - KERATOCONUS [None]
  - VISUAL DISTURBANCE [None]
